FAERS Safety Report 11889342 (Version 14)
Quarter: 2020Q1

REPORT INFORMATION
  Report Type: Report from Study
  Country: CA (occurrence: CA)
  Receive Date: 20160105
  Receipt Date: 20200221
  Transmission Date: 20200409
  Serious: Yes (Other)
  Sender: FDA-Public Use
  Company Number: CA-INCYTE CORPORATION-2012IN001594

PATIENT

DRUGS (4)
  1. JAKAVI [Suspect]
     Active Substance: RUXOLITINIB
     Dosage: 10 MG, BID
     Route: 048
  2. JAKAVI [Suspect]
     Active Substance: RUXOLITINIB
     Dosage: 15 MG, BID
     Route: 048
  3. JAKAVI [Suspect]
     Active Substance: RUXOLITINIB
     Indication: MYELOFIBROSIS
     Dosage: 20 MG, BID
     Route: 048
     Dates: start: 20120802
  4. INSULIN [Concomitant]
     Active Substance: INSULIN NOS
     Indication: DIABETES MELLITUS
     Dosage: UNK
     Route: 065

REACTIONS (30)
  - Injection site bruising [Unknown]
  - Cough [Not Recovered/Not Resolved]
  - Crying [Unknown]
  - Fall [Not Recovered/Not Resolved]
  - Cheilitis [Unknown]
  - Therapeutic product effect prolonged [Unknown]
  - Glossodynia [Unknown]
  - Anxiety [Unknown]
  - Weight increased [Unknown]
  - Flatulence [Unknown]
  - Pain [Unknown]
  - Fatigue [Unknown]
  - Abdominal distension [Unknown]
  - Epistaxis [Unknown]
  - Facial bones fracture [Unknown]
  - Increased appetite [Unknown]
  - Oropharyngeal pain [Unknown]
  - Lip dry [Unknown]
  - Dyspnoea [Not Recovered/Not Resolved]
  - Leukaemia [Unknown]
  - Constipation [Not Recovered/Not Resolved]
  - Abdominal pain [Recovering/Resolving]
  - Splenomegaly [Not Recovered/Not Resolved]
  - Influenza [Not Recovered/Not Resolved]
  - Cachexia [Unknown]
  - Haemoglobin increased [Unknown]
  - Hyperglycaemia [Unknown]
  - Platelet count decreased [Unknown]
  - Headache [Unknown]
  - Decreased appetite [Unknown]

NARRATIVE: CASE EVENT DATE: 20151110
